FAERS Safety Report 9026437 (Version 4)
Quarter: 2013Q2

REPORT INFORMATION
  Report Type: Spontaneous
  Country: US (occurrence: US)
  Receive Date: 20130123
  Receipt Date: 20130424
  Transmission Date: 20140414
  Serious: Yes (Hospitalization, Other)
  Sender: FDA-Public Use
  Company Number: US-JNJFOC-20130105371

PATIENT
  Sex: Female
  Weight: 81.65 kg

DRUGS (8)
  1. RISPERIDONE [Suspect]
     Indication: BIPOLAR DISORDER
     Route: 048
     Dates: end: 201208
  2. RISPERIDONE [Suspect]
     Indication: BIPOLAR DISORDER
     Route: 048
     Dates: end: 201109
  3. RISPERIDONE [Suspect]
     Indication: BIPOLAR DISORDER
     Route: 048
  4. TOPAMAX [Suspect]
     Indication: WEIGHT INCREASED
     Route: 048
     Dates: start: 2004, end: 2004
  5. ZYPREXA [Suspect]
     Indication: BIPOLAR DISORDER
     Route: 065
  6. KLONOPIN [Concomitant]
     Route: 065
  7. LEVOXYL [Concomitant]
     Route: 065
  8. TRAZODONE [Concomitant]
     Route: 065

REACTIONS (8)
  - Bipolar disorder [Unknown]
  - Angle closure glaucoma [Recovered/Resolved]
  - Tardive dyskinesia [Recovered/Resolved]
  - Glucose tolerance impaired [Not Recovered/Not Resolved]
  - Dystonia [Unknown]
  - Weight increased [Recovered/Resolved]
  - Blood cholesterol increased [Not Recovered/Not Resolved]
  - Anxiety [Unknown]
